FAERS Safety Report 10196674 (Version 1)
Quarter: 2014Q2

REPORT INFORMATION
  Report Type: Spontaneous
  Country: US (occurrence: None)
  Receive Date: 20140523
  Receipt Date: 20140523
  Transmission Date: 20141212
  Serious: Yes (Life-Threatening, Hospitalization)
  Sender: FDA-Public Use
  Company Number: None

PATIENT
  Age: 15 Year
  Sex: Female
  Weight: 79.4 kg

DRUGS (6)
  1. PEGASPARAGASE [Suspect]
     Indication: CHEMOTHERAPY
     Route: 042
     Dates: start: 20140501, end: 20140501
  2. ACYCLOVIR [Concomitant]
  3. FLUCONAZOLE [Concomitant]
  4. ZOFRAN [Concomitant]
  5. BACTRIM DS [Concomitant]
  6. ZANTAC [Concomitant]

REACTIONS (5)
  - Headache [None]
  - Headache [None]
  - Asthenia [None]
  - Paraesthesia [None]
  - Paraesthesia [None]
